FAERS Safety Report 13663100 (Version 1)
Quarter: 2017Q2

REPORT INFORMATION
  Report Type: Spontaneous
  Country: FR (occurrence: FR)
  Receive Date: 20170619
  Receipt Date: 20170619
  Transmission Date: 20170830
  Serious: Yes (Disabling)
  Sender: FDA-Public Use
  Company Number: FR-ROCHE-1950934

PATIENT
  Age: 44 Year
  Sex: Female

DRUGS (3)
  1. SOLUPRED (METHYLPREDNISOLONE) [Suspect]
     Active Substance: METHYLPREDNISOLONE
     Indication: LYMPHATIC DISORDER
     Dosage: UNKNOWN (40 MG/DAYS)
     Route: 048
     Dates: start: 201612, end: 201705
  2. AVASTIN [Suspect]
     Active Substance: BEVACIZUMAB
     Indication: BREAST CANCER METASTATIC
     Dosage: (FORM STRENGTH: 25 MG/ML)
     Route: 042
     Dates: start: 20170124, end: 20170419
  3. SOLU-MEDROL [Suspect]
     Active Substance: METHYLPREDNISOLONE SODIUM SUCCINATE
     Indication: LYMPHATIC DISORDER
     Route: 065
     Dates: start: 201612, end: 201705

REACTIONS (2)
  - Eschar [Not Recovered/Not Resolved]
  - Anal fistula [Not Recovered/Not Resolved]

NARRATIVE: CASE EVENT DATE: 201705
